FAERS Safety Report 21297297 (Version 1)
Quarter: 2022Q3

REPORT INFORMATION
  Report Type: Spontaneous
  Country: US (occurrence: None)
  Receive Date: 20220902
  Receipt Date: 20220902
  Transmission Date: 20221026
  Serious: Yes (Hospitalization)
  Sender: FDA-Public Use
  Company Number: None

PATIENT
  Age: 39 Year
  Sex: Female
  Weight: 132 kg

DRUGS (1)
  1. DUPILUMAB [Suspect]
     Active Substance: DUPILUMAB
     Dates: start: 20220613, end: 20220613

REACTIONS (6)
  - Dizziness [None]
  - Asthenia [None]
  - Hyperhidrosis [None]
  - Headache [None]
  - Therapy interrupted [None]
  - Vision blurred [None]

NARRATIVE: CASE EVENT DATE: 20220713
